FAERS Safety Report 6155908-6 (Version None)
Quarter: 2009Q2

REPORT INFORMATION
  Report Type: 
  Country: None (occurrence: None)
  Receive Date: 20090415
  Receipt Date: 20090406
  Transmission Date: 20091009
  Serious: Yes (Hospitalization)
  Sender: FDA-Public Use
  Company Number: US-ELI_LILLY_AND_COMPANY-US200904001139

PATIENT
  Sex: Male

DRUGS (5)
  1. ALIMTA [Suspect]
     Indication: LUNG ADENOCARCINOMA
  2. CISPLATIN [Concomitant]
     Indication: LUNG ADENOCARCINOMA
  3. VITAMIN B-12 [Concomitant]
     Indication: SUPPLEMENTATION THERAPY
  4. FOLIC ACID [Concomitant]
     Indication: SUPPLEMENTATION THERAPY
  5. PEGFILGRASTIM [Concomitant]
     Indication: COLONY STIMULATING FACTOR PROPHYLAXIS

REACTIONS (2)
  - ILEUS PARALYTIC [None]
  - NEUTROPHIL COUNT INCREASED [None]
